FAERS Safety Report 9437747 (Version 1)
Quarter: 2013Q3

REPORT INFORMATION
  Report Type: Spontaneous
  Country: US (occurrence: US)
  Receive Date: 20130802
  Receipt Date: 20130802
  Transmission Date: 20140515
  Serious: Yes (Hospitalization, Other)
  Sender: FDA-Public Use
  Company Number: US-PFIZER INC-2013222701

PATIENT
  Age: 39 Year
  Sex: Male

DRUGS (5)
  1. EFFEXOR XR [Suspect]
     Dosage: 75 MG, 1X/DAY
  2. NUCYNTA ER [Interacting]
     Indication: BACK PAIN
     Dosage: 100 MG, 2X/DAY
  3. ZOLPIDEM [Concomitant]
     Dosage: 10 MG AS NEEDED AT BEDTIME
  4. RANITIDINE [Concomitant]
     Dosage: 150 MG, 2X/DAY
  5. MORPHINE [Concomitant]
     Dosage: 45 MG, 2X/DAY

REACTIONS (2)
  - Drug interaction [Recovering/Resolving]
  - Serotonin syndrome [Recovering/Resolving]
